FAERS Safety Report 17511404 (Version 1)
Quarter: 2020Q1

REPORT INFORMATION
  Report Type: Spontaneous
  Country: US (occurrence: US)
  Receive Date: 20200227
  Receipt Date: 20200227
  Transmission Date: 20200409
  Serious: Yes (Hospitalization)
  Sender: FDA-Public Use
  Company Number: None

PATIENT
  Age: 70 Year
  Sex: Female

DRUGS (8)
  1. RENAL VITAMIN [Concomitant]
     Dates: start: 20161221
  2. NIASPAN [Concomitant]
     Active Substance: NIACIN
     Dates: start: 20161221
  3. GLIPIZIDE. [Concomitant]
     Active Substance: GLIPIZIDE
     Dates: start: 20161221
  4. ASPIRIN. [Concomitant]
     Active Substance: ASPIRIN
     Dates: start: 20161221
  5. MYCOPHENOLIC 360MG [Suspect]
     Active Substance: MYCOPHENOLIC ACID
     Indication: RENAL TRANSPLANT
     Route: 048
     Dates: start: 20161222
  6. PRAVASTATIN. [Concomitant]
     Active Substance: PRAVASTATIN
     Dates: start: 20161221
  7. LASIX [Concomitant]
     Active Substance: FUROSEMIDE
     Dates: start: 20161221
  8. TYLENOL [Concomitant]
     Active Substance: ACETAMINOPHEN
     Dates: start: 20161221

REACTIONS (1)
  - Influenza [None]

NARRATIVE: CASE EVENT DATE: 20200126
